FAERS Safety Report 11495914 (Version 2)
Quarter: 2015Q3

REPORT INFORMATION
  Report Type: Spontaneous
  Country: US (occurrence: US)
  Receive Date: 20150911
  Receipt Date: 20150922
  Transmission Date: 20151125
  Serious: Yes (Hospitalization, Other)
  Sender: FDA-Public Use
  Company Number: US-APOTEX-2015AP012617

PATIENT
  Age: 5 Decade
  Sex: Male
  Weight: 115 kg

DRUGS (6)
  1. TERBINAFINE TABLETS USP [Suspect]
     Active Substance: TERBINAFINE
     Indication: PRODUCT USED FOR UNKNOWN INDICATION
     Dosage: UNK
     Route: 065
  2. VANCOMYCIN [Concomitant]
     Active Substance: VANCOMYCIN
     Indication: CELLULITIS OF MALE EXTERNAL GENITAL ORGAN
     Dosage: UNK
     Route: 065
  3. GENTAMICIN. [Concomitant]
     Active Substance: GENTAMICIN
     Indication: CELLULITIS OF MALE EXTERNAL GENITAL ORGAN
     Dosage: UNK
     Route: 065
  4. CLINDAMYCIN [Suspect]
     Active Substance: CLINDAMYCIN\CLINDAMYCIN PHOSPHATE
     Indication: CELLULITIS OF MALE EXTERNAL GENITAL ORGAN
     Dosage: 900 MG, 8-HOURLY
     Route: 065
  5. ASPIRIN. [Concomitant]
     Active Substance: ASPIRIN
     Indication: PRODUCT USED FOR UNKNOWN INDICATION
     Dosage: UNK
     Route: 065
  6. CEFTAROLINE FOSAMIL [Suspect]
     Active Substance: CEFTAROLINE FOSAMIL
     Indication: CELLULITIS OF MALE EXTERNAL GENITAL ORGAN
     Dosage: 600 MG, 12-HOURLY
     Route: 065

REACTIONS (1)
  - Agranulocytosis [Recovered/Resolved]
